FAERS Safety Report 8536615-9 (Version None)
Quarter: 2012Q3

REPORT INFORMATION
  Report Type: 
  Country: None (occurrence: None)
  Receive Date: 20120725
  Receipt Date: 20120719
  Transmission Date: 20120928
  Serious: Yes (Other)
  Sender: FDA-Public Use
  Company Number: US-PFIZER INC-2012146678

PATIENT
  Sex: Male

DRUGS (4)
  1. CYMBALTA [Suspect]
     Indication: FIBROMYALGIA
     Dosage: 60 MG, 1X/DAY
     Dates: start: 20120524
  2. IBUPROFEN [Suspect]
     Dosage: 400 MG, Q6H, PRN
     Dates: start: 20120524
  3. PRINZIDE [Suspect]
     Indication: HYPERTENSION
     Dosage: 10-12.5MG, 1X/DAY
     Dates: start: 20120524
  4. NEURONTIN [Suspect]
     Indication: FIBROMYALGIA
     Dosage: 100 MG, 3X/DAY
     Route: 048
     Dates: start: 20120524

REACTIONS (3)
  - CHRONIC SINUSITIS [None]
  - IMPAIRED WORK ABILITY [None]
  - FIBROMYALGIA [None]
